FAERS Safety Report 8108291-0 (Version None)
Quarter: 2012Q1

REPORT INFORMATION
  Report Type: 
  Country: None (occurrence: None)
  Receive Date: 20120202
  Receipt Date: 20120120
  Transmission Date: 20120608
  Serious: Yes (Hospitalization, Other)
  Sender: FDA-Public Use
  Company Number: PHHY2010US57816

PATIENT
  Sex: Female
  Weight: 64.399 kg

DRUGS (12)
  1. MECLIZINE [Concomitant]
  2. PANTOPRAZOLE [Concomitant]
  3. GLEEVEC [Suspect]
     Indication: LEUKAEMIA
     Dosage: 1 DF, QD
     Route: 048
     Dates: start: 20090601
  4. LEVOTHYROXINE SODIUM [Concomitant]
  5. ASPIRIN [Concomitant]
  6. SIMVASTATIN [Concomitant]
  7. VITAMIN D [Concomitant]
  8. CENTRUM [Concomitant]
  9. LISINOPRIL [Concomitant]
  10. HYDROCHLOROTHIAZIDE [Concomitant]
  11. ACETAMINOPHEN [Concomitant]
  12. SPIRIVA [Concomitant]

REACTIONS (7)
  - FATIGUE [None]
  - PARAPARESIS [None]
  - DECREASED APPETITE [None]
  - DYSGEUSIA [None]
  - CEREBROVASCULAR ACCIDENT [None]
  - NAUSEA [None]
  - VOMITING [None]
